FAERS Safety Report 20554489 (Version 1)
Quarter: 2022Q1

REPORT INFORMATION
  Report Type: Report from Study
  Country: ES (occurrence: ES)
  Receive Date: 20220304
  Receipt Date: 20220304
  Transmission Date: 20220424
  Serious: Yes (Death, Hospitalization)
  Sender: FDA-Public Use
  Company Number: ES-SA-2021SA332022

PATIENT
  Age: 74 Year
  Sex: Male
  Weight: 71.5 kg

DRUGS (9)
  1. DOCETAXEL [Suspect]
     Active Substance: DOCETAXEL
     Indication: Non-small cell lung cancer
     Dosage: 75 MG/M2, Q3W
     Route: 042
     Dates: start: 20210923
  2. DOCETAXEL [Suspect]
     Active Substance: DOCETAXEL
     Dosage: 75 MG/M2, Q3W
     Route: 042
     Dates: start: 20210715, end: 20210715
  3. GABAPENTIN [Concomitant]
     Active Substance: GABAPENTIN
     Dosage: UNK
     Route: 048
     Dates: start: 20210125
  4. CIANOCOBALAMINA [Concomitant]
     Dosage: UNK
     Route: 048
     Dates: start: 20201117
  5. ACETAMINOPHEN\TRAMADOL HYDROCHLORIDE [Concomitant]
     Active Substance: ACETAMINOPHEN\TRAMADOL HYDROCHLORIDE
     Dosage: UNK
     Route: 048
     Dates: start: 20200127
  6. TAMSULOSIN [Concomitant]
     Active Substance: TAMSULOSIN
     Dosage: UNK
     Route: 048
     Dates: start: 20200127
  7. OMEPRAZOLE [Concomitant]
     Active Substance: OMEPRAZOLE
     Indication: Prophylaxis
     Dosage: UNK
     Route: 048
     Dates: start: 20190304
  8. PIROXICAM [Concomitant]
     Active Substance: PIROXICAM
     Dosage: UNK
     Route: 055
     Dates: start: 20210722
  9. LATANOPROST [Concomitant]
     Active Substance: LATANOPROST
     Dosage: UNK
     Route: 048
     Dates: start: 20180530

REACTIONS (1)
  - Respiratory tract infection [Fatal]

NARRATIVE: CASE EVENT DATE: 20210929
